FAERS Safety Report 21713538 (Version 1)
Quarter: 2022Q4

REPORT INFORMATION
  Report Type: Spontaneous
  Country: SE (occurrence: SE)
  Receive Date: 20221212
  Receipt Date: 20221212
  Transmission Date: 20230113
  Serious: Yes (Other)
  Sender: FDA-Public Use
  Company Number: None

PATIENT
  Sex: Female
  Weight: 86 kg

DRUGS (1)
  1. FLUOXETINE [Suspect]
     Active Substance: FLUOXETINE HYDROCHLORIDE
     Indication: Anxiety
     Dosage: 20 MG, 1 CAPSULE 1 TIME PER DAY
     Dates: start: 20191023, end: 20210227

REACTIONS (8)
  - Abnormal dreams [Not Recovered/Not Resolved]
  - Withdrawal syndrome [Not Recovered/Not Resolved]
  - Libido decreased [Recovered/Resolved]
  - Vision blurred [Recovering/Resolving]
  - Weight increased [Recovered/Resolved]
  - Formication [Not Recovered/Not Resolved]
  - Tremor [Not Recovered/Not Resolved]
  - Electric shock sensation [Recovering/Resolving]

NARRATIVE: CASE EVENT DATE: 20191201
